FAERS Safety Report 17219523 (Version 3)
Quarter: 2020Q1

REPORT INFORMATION
  Report Type: Spontaneous
  Country: US (occurrence: US)
  Receive Date: 20191231
  Receipt Date: 20200212
  Transmission Date: 20200409
  Serious: No
  Sender: FDA-Public Use
  Company Number: US-PFIZER INC-2019560488

PATIENT
  Age: 88 Year
  Sex: Female
  Weight: 61.22 kg

DRUGS (3)
  1. GABAPENTIN. [Suspect]
     Active Substance: GABAPENTIN
     Indication: NEURALGIA
     Dosage: 300 MG, 2X/DAY
  2. GABAPENTIN. [Suspect]
     Active Substance: GABAPENTIN
     Dosage: 1200 MG, DAILY (4 TABS, 300 MG EACH])
  3. GABAPENTIN. [Suspect]
     Active Substance: GABAPENTIN
     Dosage: 2 DF, DAILY

REACTIONS (10)
  - Flatulence [Unknown]
  - Product use in unapproved indication [Unknown]
  - Condition aggravated [Unknown]
  - Irritable bowel syndrome [Unknown]
  - Neuralgia [Unknown]
  - Off label use [Unknown]
  - Abdominal discomfort [Unknown]
  - Lactose intolerance [Recovered/Resolved]
  - Diarrhoea [Unknown]
  - Abdominal distension [Unknown]
